FAERS Safety Report 8418645-0 (Version None)
Quarter: 2012Q2

REPORT INFORMATION
  Report Type: 
  Country: None (occurrence: None)
  Receive Date: 20120607
  Receipt Date: 20120525
  Transmission Date: 20120825
  Serious: Yes (Other)
  Sender: FDA-Public Use
  Company Number: JP-ELI_LILLY_AND_COMPANY-JP201205009887

PATIENT
  Age: 85 Year
  Sex: Female

DRUGS (1)
  1. FORTEO [Suspect]
     Dosage: UNK
     Route: 058
     Dates: start: 20120523, end: 20120523

REACTIONS (6)
  - NEPHROGENIC DIABETES INSIPIDUS [None]
  - BACK PAIN [None]
  - PAIN IN EXTREMITY [None]
  - HYPERCALCAEMIA [None]
  - URINE KETONE BODY PRESENT [None]
  - PYREXIA [None]
